FAERS Safety Report 13703530 (Version 13)
Quarter: 2020Q1

REPORT INFORMATION
  Report Type: Spontaneous
  Country: US (occurrence: US)
  Receive Date: 20170629
  Receipt Date: 20200224
  Transmission Date: 20200409
  Serious: Yes (Hospitalization, Other)
  Sender: FDA-Public Use
  Company Number: US-PFIZER INC-2017277510

PATIENT
  Age: 64 Year
  Sex: Female
  Weight: 75 kg

DRUGS (26)
  1. SYNTHROID [Concomitant]
     Active Substance: LEVOTHYROXINE SODIUM
     Indication: THYROID DISORDER
     Dosage: 1 DF, DAILY
     Route: 048
     Dates: start: 20160606, end: 20170531
  2. AZITHROMYCIN ANHYDROUS. [Suspect]
     Active Substance: AZITHROMYCIN ANHYDROUS
     Indication: BRONCHITIS
     Dosage: 250 MG, ONCE A DAY
     Route: 048
     Dates: start: 20170315, end: 20170319
  3. BENDROFLUMETHIAZIDE [Concomitant]
     Active Substance: BENDROFLUMETHIAZIDE
     Indication: IRRITABLE BOWEL SYNDROME
     Dosage: 10 MG, AS NEEDED(10MG, 1 CAPSULE 4 TIMES A DAY AS NEEDED)
  4. BIOTIN [Concomitant]
     Active Substance: BIOTIN
     Dosage: 5000 UG, 1X/DAY
  5. FLONASE [Concomitant]
     Active Substance: FLUTICASONE PROPIONATE
     Dosage: 1 DF (SPRAY), DAILY
     Route: 045
     Dates: start: 20151230, end: 20180425
  6. ZEGERID OTC [Concomitant]
     Active Substance: OMEPRAZOLE\SODIUM BICARBONATE
     Dosage: 1 DF, DAILY (20-1.1 MG-GRAM)
     Route: 048
     Dates: end: 20190204
  7. LOSARTAN AND HYDROCHLOROTHIAZIDE [Concomitant]
     Active Substance: HYDROCHLOROTHIAZIDE\LOSARTAN POTASSIUM
     Indication: BLOOD PRESSURE ABNORMAL
     Dosage: UNK, 1X/DAY (50-12.5 MG)
  8. HYZAAR [Concomitant]
     Active Substance: HYDROCHLOROTHIAZIDE\LOSARTAN POTASSIUM
     Indication: ESSENTIAL HYPERTENSION
     Dosage: 1 DF, DAILY (50-12.5 MG)
     Route: 048
     Dates: start: 20170315, end: 20170809
  9. DELTASONE [Concomitant]
     Active Substance: PREDNISONE
     Dosage: 2 DF, DAILY
     Route: 048
     Dates: start: 20170119, end: 20170315
  10. VALIUM [Concomitant]
     Active Substance: DIAZEPAM
     Indication: MUSCLE RELAXANT THERAPY
     Dosage: 0.5 MG, 3X/DAY (AS NEEDED)
     Route: 048
     Dates: start: 20160902, end: 20171012
  11. ZEGERID [Concomitant]
     Active Substance: OMEPRAZOLE\SODIUM BICARBONATE
     Indication: GASTROOESOPHAGEAL REFLUX DISEASE
     Dosage: 20 MG, 1X/DAY
  12. METOPROLOL TARTRATE. [Concomitant]
     Active Substance: METOPROLOL TARTRATE
     Dosage: UNK
  13. BENTYL [Concomitant]
     Active Substance: DICYCLOMINE HYDROCHLORIDE
     Dosage: 1 DF, 4X/DAY (AS NEEDED)
     Route: 048
     Dates: start: 20170222, end: 20170501
  14. AMOXIL [Concomitant]
     Active Substance: AMOXICILLIN
     Dosage: 1 DF, 3X/DAY
     Route: 048
     Dates: start: 20170119, end: 20170315
  15. ERGOCALCIFEROL. [Concomitant]
     Active Substance: ERGOCALCIFEROL
     Dosage: 1 DF, WEEKLY
     Route: 048
     Dates: start: 20161026, end: 20180203
  16. CRANBERRY CONCENTRATE [Concomitant]
     Active Substance: CRANBERRY CONCENTRATE
     Dosage: UNK, DAILY
     Route: 048
     Dates: end: 20170326
  17. AZITHROMYCIN ANHYDROUS. [Suspect]
     Active Substance: AZITHROMYCIN ANHYDROUS
     Dosage: 250 MG, 1X/DAY (CONTINUED TO TAKE THE PRODUCT ONE A DAY)
     Route: 048
     Dates: start: 20170315, end: 20170319
  18. ZITHROMAX [Suspect]
     Active Substance: AZITHROMYCIN DIHYDRATE
     Dosage: 250 MG, 1X/DAY
     Route: 048
     Dates: end: 20170320
  19. LOPRESSOR [Concomitant]
     Active Substance: METOPROLOL TARTRATE
     Dosage: 1 DF, 2X/DAY
     Route: 048
     Dates: start: 20161115, end: 20170326
  20. AZITHROMYCIN ANHYDROUS. [Suspect]
     Active Substance: AZITHROMYCIN ANHYDROUS
     Dosage: 250 MG, 2X/DAY (TOOK TWO PILLS THE DAY SHE GOT HOME)
     Route: 048
     Dates: start: 20170315, end: 20170319
  21. ZITHROMAX [Suspect]
     Active Substance: AZITHROMYCIN DIHYDRATE
     Indication: BRONCHITIS
     Dosage: 250 MG, 2X/DAY
     Route: 048
     Dates: start: 20170315
  22. SYNTHROID [Concomitant]
     Active Substance: LEVOTHYROXINE SODIUM
     Dosage: 25 MG, ONCE A DAY (IN THE MORNING)
  23. FLUCONAZOLE. [Concomitant]
     Active Substance: FLUCONAZOLE
     Dosage: UNK
  24. CATAPRESSAN [Concomitant]
     Active Substance: CLONIDINE
     Dosage: 1 DF, 2X/DAY
     Route: 048
     Dates: start: 20161026, end: 20170315
  25. BIOTIN [Concomitant]
     Active Substance: BIOTIN
     Dosage: UNK
     Dates: end: 20170326
  26. LEVOTHYROXIN [Concomitant]
     Active Substance: LEVOTHYROXINE
     Dosage: UNK

REACTIONS (12)
  - Insomnia [Not Recovered/Not Resolved]
  - Heart rate increased [Not Recovered/Not Resolved]
  - Tinnitus [Not Recovered/Not Resolved]
  - Hyperhidrosis [Not Recovered/Not Resolved]
  - Palpitations [Not Recovered/Not Resolved]
  - Hypertension [Not Recovered/Not Resolved]
  - Drug hypersensitivity [Not Recovered/Not Resolved]
  - Malaise [Unknown]
  - Dyspnoea [Not Recovered/Not Resolved]
  - Anxiety [Recovered/Resolved]
  - Nausea [Recovered/Resolved]
  - Tremor [Not Recovered/Not Resolved]

NARRATIVE: CASE EVENT DATE: 20170317
